FAERS Safety Report 4489275-0 (Version None)
Quarter: 2004Q4

REPORT INFORMATION
  Report Type: 
  Country: None (occurrence: None)
  Receive Date: 20041026
  Receipt Date: 20041011
  Transmission Date: 20050328
  Serious: Yes (Hospitalization)
  Sender: FDA-Public Use
  Company Number: 2004AL000863

PATIENT
  Age: 54 Year
  Sex: Female

DRUGS (15)
  1. SERA (OXAZEPAM) CAPSULES, 30 MG (ALPHARMA) [Suspect]
     Dosage: SEE IMAGE
     Dates: start: 20040810, end: 20040818
  2. SERA (OXAZEPAM) CAPSULES, 30 MG (ALPHARMA) [Suspect]
     Dosage: SEE IMAGE
     Dates: start: 20040819, end: 20040819
  3. SERA (OXAZEPAM) CAPSULES, 30 MG (ALPHARMA) [Suspect]
     Dosage: SEE IMAGE
     Dates: start: 20040820, end: 20040820
  4. SERA (OXAZEPAM) CAPSULES, 30 MG (ALPHARMA) [Suspect]
     Dosage: SEE IMAGE
     Dates: start: 20040821, end: 20040821
  5. SERA (OXAZEPAM) CAPSULES, 30 MG (ALPHARMA) [Suspect]
     Dosage: SEE IMAGE
     Dates: start: 20040822
  6. SEROQUEL [Suspect]
     Dosage: SEE IMAGE
     Dates: start: 20040809, end: 20040809
  7. SEROQUEL [Suspect]
     Dosage: SEE IMAGE
     Dates: start: 20040810, end: 20040810
  8. SEROQUEL [Suspect]
     Dosage: SEE IMAGE
     Dates: start: 20040811, end: 20040815
  9. SEROQUEL [Suspect]
     Dosage: SEE IMAGE
     Dates: start: 20040816, end: 20040820
  10. SEROQUEL [Suspect]
     Dosage: SEE IMAGE
     Dates: start: 20040821
  11. DEPAKENE [Suspect]
     Dosage: SEE IMAGE
     Dates: start: 20040809, end: 20040809
  12. DEPAKENE [Suspect]
     Dosage: SEE IMAGE
     Dates: start: 20040810, end: 20040810
  13. DEPAKENE [Suspect]
     Dosage: SEE IMAGE
     Dates: start: 20040811, end: 20040820
  14. DEPAKENE [Suspect]
     Dosage: SEE IMAGE
     Dates: start: 20040821, end: 20040821
  15. DEPAKENE [Suspect]
     Dosage: SEE IMAGE
     Dates: start: 20040822

REACTIONS (4)
  - CEREBRAL DISORDER [None]
  - ELECTROENCEPHALOGRAM ABNORMAL [None]
  - SIMPLE PARTIAL SEIZURES [None]
  - SOMNOLENCE [None]
